FAERS Safety Report 5135440-9 (Version None)
Quarter: 2006Q4

REPORT INFORMATION
  Report Type: 
  Country: None (occurrence: None)
  Receive Date: 20061026
  Receipt Date: 20061017
  Transmission Date: 20070319
  Serious: Yes (Hospitalization)
  Sender: FDA-Public Use
  Company Number: FR-GLAXOSMITHKLINE-B0443648A

PATIENT
  Age: 48 Year
  Sex: Male

DRUGS (16)
  1. ZELITREX [Suspect]
     Dosage: 500MG TWICE PER DAY
     Route: 048
     Dates: start: 20060901, end: 20060914
  2. ACYCLOVIR [Suspect]
     Route: 042
     Dates: start: 20060829, end: 20060901
  3. OFLOCET [Suspect]
     Dosage: 200MG PER DAY
     Route: 048
     Dates: end: 20060911
  4. AUGMENTIN '125' [Concomitant]
     Dates: end: 20060824
  5. SULFARLEM [Concomitant]
  6. DAFALGAN [Concomitant]
  7. THERALITE [Concomitant]
  8. TERCIAN [Concomitant]
  9. FORLAX [Concomitant]
  10. RISPERDAL [Concomitant]
  11. RIVOTRIL [Concomitant]
  12. LEPTICUR [Concomitant]
  13. CLONAZEPAM [Concomitant]
  14. IMOVANE [Concomitant]
  15. VIT B1 B6 [Concomitant]
  16. LEVOFLOXACIN [Concomitant]
     Dates: start: 20060830, end: 20060910

REACTIONS (3)
  - ERYTHEMA [None]
  - PYREXIA [None]
  - TOXIC SKIN ERUPTION [None]
